FAERS Safety Report 18647986 (Version 1)
Quarter: 2020Q4

REPORT INFORMATION
  Report Type: Report from Study
  Country: None (occurrence: US)
  Receive Date: 20201222
  Receipt Date: 20201222
  Transmission Date: 20210114
  Serious: Yes (Other)
  Sender: FDA-Public Use
  Company Number: US-ABBVIE-20K-163-3557094-00

PATIENT
  Sex: Female

DRUGS (2)
  1. HUMIRA [Suspect]
     Active Substance: ADALIMUMAB
     Indication: CROHN^S DISEASE
     Dosage: CITRATE FREE
     Route: 058
  2. MIRALAX [Concomitant]
     Active Substance: POLYETHYLENE GLYCOL 3350
     Indication: PRODUCT USED FOR UNKNOWN INDICATION

REACTIONS (6)
  - Solvent sensitivity [Not Recovered/Not Resolved]
  - Urticaria aquagenic [Not Recovered/Not Resolved]
  - Dry skin [Not Recovered/Not Resolved]
  - Sinonasal obstruction [Recovering/Resolving]
  - Constipation [Recovering/Resolving]
  - Formication [Not Recovered/Not Resolved]

NARRATIVE: CASE EVENT DATE: 2020
